FAERS Safety Report 5211781-1 (Version None)
Quarter: 2007Q1

REPORT INFORMATION
  Report Type: 
  Country: None (occurrence: None)
  Receive Date: 20070112
  Receipt Date: 20070102
  Transmission Date: 20070707
  Serious: Yes (Other)
  Sender: FDA-Public Use
  Company Number: 2007EU000011

PATIENT
  Age: 13 Year
  Sex: Female

DRUGS (1)
  1. PROTOPIC [Suspect]
     Dosage: 0.1%, TOPICAL
     Route: 061
     Dates: start: 20060820, end: 20060822

REACTIONS (2)
  - ERYTHEMA MULTIFORME [None]
  - SKIN HYPERPIGMENTATION [None]
